FAERS Safety Report 6748109-1 (Version None)
Quarter: 2010Q2

REPORT INFORMATION
  Report Type: 
  Country: None (occurrence: None)
  Receive Date: 20100531
  Receipt Date: 20100524
  Transmission Date: 20101027
  Serious: Yes (Other)
  Sender: FDA-Public Use
  Company Number: AU-JNJFOC-20100502434

PATIENT
  Sex: Female
  Weight: 77 kg

DRUGS (6)
  1. DURAGESIC-100 [Suspect]
     Indication: PAIN
     Route: 062
  2. DURAGESIC-100 [Suspect]
     Route: 062
  3. DURAGESIC-100 [Suspect]
     Indication: FRACTURE
     Route: 062
  4. DURAGESIC-100 [Suspect]
     Route: 062
  5. DURAGESIC-100 [Suspect]
     Indication: PAIN MANAGEMENT
     Route: 062
  6. DURAGESIC-100 [Suspect]
     Route: 062

REACTIONS (3)
  - DRUG PRESCRIBING ERROR [None]
  - NAUSEA [None]
  - SOMNOLENCE [None]
